FAERS Safety Report 8715195 (Version 2)
Quarter: 2012Q4

REPORT INFORMATION
  Report Type: 
  Country: US (occurrence: US)
  Receive Date: 20120809
  Receipt Date: 20120906
  Transmission Date: 20130627
  Serious: Yes (Other)
  Sender: FDA-Public Use
  Company Number: US-ASTRAZENECA-2012SE54369

PATIENT
  Age: 54 Year
  Sex: Male

DRUGS (2)
  1. PULMICORT FLEXHALER [Suspect]
     Route: 055
  2. TOPROL XL [Suspect]
     Indication: BLOOD PRESSURE
     Route: 048

REACTIONS (1)
  - Chronic obstructive pulmonary disease [Unknown]
